FAERS Safety Report 17689400 (Version 3)
Quarter: 2020Q3

REPORT INFORMATION
  Report Type: Report from Study
  Country: None (occurrence: US)
  Receive Date: 20200421
  Receipt Date: 20200824
  Transmission Date: 20201102
  Serious: Yes (Death, Hospitalization)
  Sender: FDA-Public Use
  Company Number: US-INSMED, INC.-US-INS-20-00537

PATIENT
  Sex: Male

DRUGS (3)
  1. ARIKAYCE [Suspect]
     Active Substance: AMIKACIN
     Indication: PRODUCT USED FOR UNKNOWN INDICATION
     Route: 055
     Dates: start: 20191206
  2. ARIKAYCE [Suspect]
     Active Substance: AMIKACIN
     Route: 055
  3. ARIKAYCE [Suspect]
     Active Substance: AMIKACIN
     Route: 055

REACTIONS (10)
  - Throat tightness [Unknown]
  - Nasopharyngitis [Unknown]
  - Secretion discharge [Recovering/Resolving]
  - Pneumonia [Recovering/Resolving]
  - Wrong technique in product usage process [Unknown]
  - Off label use [Unknown]
  - Death [Fatal]
  - Hospitalisation [Unknown]
  - Dysphonia [Unknown]
  - Cough [Unknown]

NARRATIVE: CASE EVENT DATE: 2020
